FAERS Safety Report 6716958-1 (Version None)
Quarter: 2010Q2

REPORT INFORMATION
  Report Type: 
  Country: None (occurrence: None)
  Receive Date: 20100510
  Receipt Date: 20100510
  Transmission Date: 20101027
  Serious: Yes (Hospitalization)
  Sender: FDA-Public Use
  Company Number: None

PATIENT
  Age: 1 Year
  Sex: Female
  Weight: 8.1647 kg

DRUGS (3)
  1. MOTRIN [Suspect]
     Indication: CROUP INFECTIOUS
     Dosage: 1.875 MOTRIN EVERY 8 HOURS PO
     Route: 048
     Dates: start: 20100303, end: 20100318
  2. TYLENOL INFANT DROPS NOT SURE TYLENOL [Suspect]
     Indication: PNEUMONIA
     Dosage: 1.8 TYLENOL EVERY 4 HOURS PO
     Route: 048
  3. TYLENOL INFANT DROPS NOT SURE TYLENOL [Suspect]
     Indication: PYREXIA
     Dosage: 1.8 TYLENOL EVERY 4 HOURS PO
     Route: 048

REACTIONS (4)
  - CROUP INFECTIOUS [None]
  - PNEUMONIA BACTERIAL [None]
  - PRODUCT QUALITY ISSUE [None]
  - VIRAL INFECTION [None]
